FAERS Safety Report 5435778-1 (Version None)
Quarter: 2007Q3

REPORT INFORMATION
  Report Type: 
  Country: None (occurrence: None)
  Receive Date: 20070831
  Receipt Date: 20070725
  Transmission Date: 20080115
  Serious: No
  Sender: FDA-Public Use
  Company Number: A0665927A

PATIENT
  Age: 56 Year
  Sex: Female

DRUGS (1)
  1. ALLI [Suspect]
     Indication: DRUG USE FOR UNKNOWN INDICATION

REACTIONS (5)
  - ARRHYTHMIA [None]
  - BLOOD POTASSIUM DECREASED [None]
  - INTENTIONAL DRUG MISUSE [None]
  - STEATORRHOEA [None]
  - VENTRICULAR EXTRASYSTOLES [None]
